FAERS Safety Report 12841818 (Version 2)
Quarter: 2016Q4

REPORT INFORMATION
  Report Type: Report from Study
  Country: KR (occurrence: KR)
  Receive Date: 20161012
  Receipt Date: 20161110
  Transmission Date: 20170207
  Serious: Yes (Hospitalization, Other)
  Sender: FDA-Public Use
  Company Number: KR-ALEXION-A201607595

PATIENT
  Age: 71 Year
  Sex: Male
  Weight: 53 kg

DRUGS (6)
  1. SOLIRIS [Suspect]
     Active Substance: ECULIZUMAB
     Dosage: 900 MG, Q2W
     Route: 042
     Dates: start: 20140828
  2. REBAMIPIDE [Concomitant]
     Active Substance: REBAMIPIDE
     Indication: PROPHYLAXIS
     Dosage: 100 MG, UNK
     Route: 048
     Dates: start: 20160708, end: 20160712
  3. SOLIRIS [Suspect]
     Active Substance: ECULIZUMAB
     Indication: PAROXYSMAL NOCTURNAL HAEMOGLOBINURIA
     Dosage: 600 MG, QW
     Route: 042
     Dates: start: 20140729, end: 20140818
  4. BENZYDAMINE [Concomitant]
     Active Substance: BENZYDAMINE
     Indication: PROPHYLAXIS
     Dosage: 15 ML, UNK
     Route: 050
     Dates: start: 20160709, end: 20160712
  5. TAMIPOOL [Concomitant]
     Active Substance: VITAMINS
     Indication: SUPPLEMENTATION THERAPY
     Dosage: UNK (1 VIAL)
     Route: 042
     Dates: start: 20160709, end: 20160711
  6. POTASSIUM [Concomitant]
     Active Substance: POTASSIUM
     Indication: PROPHYLAXIS
     Dosage: 1.5 G, UNK
     Route: 042
     Dates: start: 20160709, end: 20160711

REACTIONS (7)
  - Pyrexia [Recovered/Resolved]
  - Rhinorrhoea [Recovered/Resolved]
  - Diabetes mellitus [Recovered/Resolved with Sequelae]
  - Productive cough [Recovered/Resolved]
  - Cough [Recovered/Resolved]
  - Cervical spinal stenosis [Recovered/Resolved with Sequelae]
  - Headache [Recovered/Resolved]

NARRATIVE: CASE EVENT DATE: 20160310
